FAERS Safety Report 8596048-6 (Version None)
Quarter: 2012Q3

REPORT INFORMATION
  Report Type: 
  Country: None (occurrence: None)
  Receive Date: 20120801
  Receipt Date: 20120726
  Transmission Date: 20120928
  Serious: Yes (Death, Other)
  Sender: FDA-Public Use
  Company Number: US-2012-11012

PATIENT
  Age: 37 Year
  Sex: Female

DRUGS (6)
  1. GABEXATE MESILATE (GABEXATE MESILATE) [Concomitant]
  2. CYCLOPHOSPHAMIDE [Suspect]
     Indication: BONE MARROW CONDITIONING REGIMEN
     Dosage: 60 MG/KG, DAILY DOSE, DAY -3
  3. BUSULFEX [Suspect]
     Indication: BONE MARROW CONDITIONING REGIMEN
     Dosage: 3.2 MG/KG, DAILY DOSE, -7 TO DAY -4, INTRAVENOUS
     Route: 042
  4. ANTI-THYMOCYTE GLOBULIN NOS [Suspect]
     Indication: BONE MARROW CONDITIONING REGIMEN
     Dosage: 15 MG/KG, DAILY DOSE, DAY -2 AND DAY -1
  5. GEMTUZUMAB OZOGAMICIN (GEMTUZUMAB OZOGAMICIN) [Concomitant]
  6. PREDNISOLONE [Concomitant]

REACTIONS (5)
  - AUTOIMMUNE PANCREATITIS [None]
  - CHRONIC GRAFT VERSUS HOST DISEASE [None]
  - ACUTE MYELOID LEUKAEMIA RECURRENT [None]
  - CHRONIC GRAFT VERSUS HOST DISEASE IN SKIN [None]
  - DIARRHOEA [None]
